FAERS Safety Report 8586785-1 (Version None)
Quarter: 2012Q3

REPORT INFORMATION
  Report Type: 
  Country: None (occurrence: None)
  Receive Date: 20120810
  Receipt Date: 20120730
  Transmission Date: 20120928
  Serious: Yes (Hospitalization, Other)
  Sender: FDA-Public Use
  Company Number: US-ELI_LILLY_AND_COMPANY-US201208000382

PATIENT
  Age: 52 Year
  Sex: Male

DRUGS (5)
  1. HUMALOG [Suspect]
     Dosage: UNK UNK, PRN
     Dates: end: 20110101
  2. OXYCONTIN [Concomitant]
  3. LANTUS [Concomitant]
  4. HUMALOG [Suspect]
     Indication: DIABETES MELLITUS
     Dosage: UNK, PRN
     Dates: start: 20110101
  5. LORTAB [Concomitant]
     Dosage: 10 MG, UNK

REACTIONS (7)
  - STAPHYLOCOCCAL INFECTION [None]
  - LOSS OF CONSCIOUSNESS [None]
  - LEG AMPUTATION [None]
  - INCORRECT DOSE ADMINISTERED [None]
  - DRUG INEFFECTIVE [None]
  - MYOCARDIAL INFARCTION [None]
  - DIABETIC KETOACIDOSIS [None]
